FAERS Safety Report 19143598 (Version 1)
Quarter: 2021Q2

REPORT INFORMATION
  Report Type: Spontaneous
  Country: CA (occurrence: CA)
  Receive Date: 20210416
  Receipt Date: 20210416
  Transmission Date: 20210717
  Serious: Yes (Hospitalization, Other)
  Sender: FDA-Public Use
  Company Number: CA-TEVA-2021-CA-1900592

PATIENT
  Age: 44 Year
  Sex: Male

DRUGS (14)
  1. CBD OIL [Suspect]
     Active Substance: CANNABIDIOL\HERBALS
     Indication: PAIN
  2. TETRAHYDROCANNABINOL (THC) [Suspect]
     Active Substance: DRONABINOL
     Indication: PAIN
     Route: 065
  3. TEMAZEPAM. [Suspect]
     Active Substance: TEMAZEPAM
     Indication: PAIN
     Route: 065
  4. MAGNESIUM SULFATE. [Concomitant]
     Active Substance: MAGNESIUM SULFATE
  5. LIDOCAINE. [Concomitant]
     Active Substance: LIDOCAINE
  6. DULOXETINE. [Suspect]
     Active Substance: DULOXETINE
     Indication: PAIN
     Route: 065
  7. KETAMINE (UNKNOWN) [Suspect]
     Active Substance: KETAMINE
     Indication: PAIN
     Dosage: 12 MG/KG DAILY;
     Route: 042
  8. AMITRIPTYLINE HYDROCHLORIDE W/PERPHENAZINE [Suspect]
     Active Substance: AMITRIPTYLINE HYDROCHLORIDE\PERPHENAZINE
     Indication: PAIN
     Route: 065
  9. ZOPICLONE [Suspect]
     Active Substance: ZOPICLONE
     Indication: PAIN
     Route: 065
  10. TETRAHYDROCANNABINOL (THC) [Suspect]
     Active Substance: DRONABINOL
  11. MIDAZOLAM (UNKNOWN) [Suspect]
     Active Substance: MIDAZOLAM HYDROCHLORIDE
     Indication: PROPHYLAXIS
     Route: 042
  12. KETAMINE (UNKNOWN) [Suspect]
     Active Substance: KETAMINE
     Dosage: 12 MG/KG DAILY;
     Route: 042
  13. ONDANSETRON [Concomitant]
     Active Substance: ONDANSETRON
  14. DEXAMETHASONE. [Concomitant]
     Active Substance: DEXAMETHASONE
     Route: 065

REACTIONS (1)
  - Behaviour disorder [Recovered/Resolved]
